FAERS Safety Report 19499731 (Version 11)
Quarter: 2023Q2

REPORT INFORMATION
  Report Type: Report from Study
  Country: AU (occurrence: AU)
  Receive Date: 20210706
  Receipt Date: 20230508
  Transmission Date: 20230722
  Serious: Yes (Hospitalization)
  Sender: FDA-Public Use
  Company Number: AU-PFIZER INC-2021800865

PATIENT
  Age: 64 Year
  Sex: Female

DRUGS (11)
  1. ENCORAFENIB [Suspect]
     Active Substance: ENCORAFENIB
     Indication: Colorectal cancer metastatic
     Dosage: 300 MG, 1X/DAY
     Route: 048
     Dates: start: 20210609, end: 20210626
  2. FLUOROURACIL [Suspect]
     Active Substance: FLUOROURACIL
     Indication: Colorectal cancer metastatic
     Dosage: 600 MG, EVERY 2 WEEKS, NOT ONGOING
     Route: 040
     Dates: start: 20210609, end: 20210622
  3. FLUOROURACIL [Suspect]
     Active Substance: FLUOROURACIL
     Dosage: 3575 MG FOR IV INFUSION, EVERY 2 WEEKS, NOT ONGOING
     Route: 042
     Dates: start: 20210609, end: 20210624
  4. IRINOTECAN HYDROCHLORIDE [Suspect]
     Active Substance: IRINOTECAN HYDROCHLORIDE
     Indication: Colorectal cancer metastatic
     Dosage: 270 MG, EVERY 2 WEEKS, NOT ONGOING
     Route: 042
     Dates: start: 20210609, end: 20210622
  5. LEUCOVORIN CALCIUM [Suspect]
     Active Substance: LEUCOVORIN CALCIUM
     Indication: Colorectal cancer metastatic
     Dosage: 596 MG, EVERY 2 WEEKS, NOT ONGOING
     Route: 042
     Dates: start: 20210609, end: 20210622
  6. CETUXIMAB [Suspect]
     Active Substance: CETUXIMAB
     Indication: Colorectal cancer metastatic
     Dosage: 3 ML, EVERY 2 WEEKS
     Route: 042
     Dates: start: 20210609, end: 20210609
  7. CURCUMIN [Concomitant]
     Active Substance: CURCUMIN
     Dosage: 600 PLUS DAILY
     Route: 048
  8. MAGNESIUM [Concomitant]
     Active Substance: MAGNESIUM
     Dosage: UNK, DAILY
     Route: 048
  9. SELENIUM [Concomitant]
     Active Substance: SELENIUM
     Dosage: UNK, DAILY (DROPS)
     Route: 048
  10. CHOLECALCIFEROL [Concomitant]
     Active Substance: CHOLECALCIFEROL
     Dosage: UNK, DAILY
     Route: 048
  11. MOVICOL [Concomitant]
     Active Substance: POLYETHYLENE GLYCOL 3350\POTASSIUM CHLORIDE\SODIUM BICARBONATE\SODIUM CHLORIDE
     Indication: Constipation
     Dosage: UNK, AS NEEDED
     Route: 048
     Dates: start: 20210622

REACTIONS (1)
  - Bone pain [Recovering/Resolving]

NARRATIVE: CASE EVENT DATE: 20210625
